FAERS Safety Report 15822429 (Version 2)
Quarter: 2019Q1

REPORT INFORMATION
  Report Type: Other
  Country: US (occurrence: US)
  Receive Date: 20190114
  Receipt Date: 20190312
  Transmission Date: 20190417
  Serious: Yes (Death, Hospitalization)
  Sender: FDA-Public Use
  Company Number: US-INTERCEPT-PMOCA2018002022

PATIENT

DRUGS (2)
  1. OCALIVA [Suspect]
     Active Substance: OBETICHOLIC ACID
     Indication: PRIMARY BILIARY CHOLANGITIS
     Dosage: 5 MG, QD
     Route: 065
     Dates: start: 20170530, end: 20171206
  2. OCALIVA [Suspect]
     Active Substance: OBETICHOLIC ACID
     Dosage: 10 MG, QD
     Route: 048
     Dates: start: 20171206, end: 201812

REACTIONS (5)
  - Sinusitis [Unknown]
  - Hyperbilirubinaemia [Unknown]
  - Disease progression [Unknown]
  - Septic shock [Fatal]
  - Portal hypertension [Unknown]

NARRATIVE: CASE EVENT DATE: 201812
